FAERS Safety Report 6156040-8 (Version None)
Quarter: 2009Q2

REPORT INFORMATION
  Report Type: 
  Country: None (occurrence: None)
  Receive Date: 20090415
  Receipt Date: 20090205
  Transmission Date: 20091009
  Serious: No
  Sender: FDA-Public Use
  Company Number: US-BAYER-200913408NA

PATIENT
  Age: 54 Year
  Sex: Female
  Weight: 59 kg

DRUGS (10)
  1. MAGNEVIST [Suspect]
     Indication: MAMMOGRAM ABNORMAL
     Dosage: TOTAL DAILY DOSE: 20 ML  UNIT DOSE: 20 ML
     Route: 042
     Dates: start: 20090204, end: 20090204
  2. ZOCOR [Concomitant]
  3. SYNTHROID [Concomitant]
  4. FOSAMAX [Concomitant]
  5. FIORICET [Concomitant]
  6. NAPROXEN [Concomitant]
  7. ZYRTEC [Concomitant]
  8. VALTREX [Concomitant]
  9. SOMA [Concomitant]
  10. MOBIC [Concomitant]

REACTIONS (3)
  - LACRIMATION INCREASED [None]
  - RHINORRHOEA [None]
  - SNEEZING [None]
